FAERS Safety Report 9617198 (Version 1)
Quarter: 2013Q4

REPORT INFORMATION
  Report Type: Spontaneous
  Country: US (occurrence: None)
  Receive Date: 20131011
  Receipt Date: 20131011
  Transmission Date: 20140711
  Serious: Yes (Disabling)
  Sender: FDA-Public Use
  Company Number: None

PATIENT
  Age: 43 Year
  Sex: Male
  Weight: 83.92 kg

DRUGS (1)
  1. BIOTENE PBF [Suspect]

REACTIONS (2)
  - Increased viscosity of nasal secretion [None]
  - Sinusitis [None]
